FAERS Safety Report 22604185 (Version 1)
Quarter: 2023Q2

REPORT INFORMATION
  Report Type: Report from Study
  Country: CO (occurrence: CO)
  Receive Date: 20230615
  Receipt Date: 20230615
  Transmission Date: 20230722
  Serious: Yes (Other)
  Sender: FDA-Public Use
  Company Number: CO-BAYER-2023A082848

PATIENT
  Age: 88 Year
  Sex: Female

DRUGS (8)
  1. EYLEA [Suspect]
     Active Substance: AFLIBERCEPT
     Indication: Diabetic retinal oedema
     Dosage: LEFT EYE, SOLUTION FOR INJECTION, 40 MG/ML
     Route: 031
     Dates: start: 20220216, end: 20220216
  2. EYLEA [Suspect]
     Active Substance: AFLIBERCEPT
     Dosage: BOTH EYES, SOLUTION FOR INJECTION, 40 MG/ML
     Route: 031
     Dates: start: 20220523, end: 20220523
  3. EYLEA [Suspect]
     Active Substance: AFLIBERCEPT
     Dosage: BOTH EYES, SOLUTION FOR INJECTION, 40 MG/ML
     Route: 031
     Dates: start: 20220602, end: 20220602
  4. EYLEA [Suspect]
     Active Substance: AFLIBERCEPT
     Dosage: BOTH EYES, SOLUTION FOR INJECTION, 40 MG/ML
     Route: 031
     Dates: start: 20220714, end: 20220714
  5. EYLEA [Suspect]
     Active Substance: AFLIBERCEPT
     Dosage: SIC, SOLUTION FOR INJECTION, 40 MG/ML
     Route: 031
     Dates: start: 202209, end: 202209
  6. EYLEA [Suspect]
     Active Substance: AFLIBERCEPT
     Dosage: BOTH EYES, SOLUTION FOR INJECTION, 40 MG/ML
     Route: 031
     Dates: start: 20221201, end: 20221201
  7. EYLEA [Suspect]
     Active Substance: AFLIBERCEPT
     Dosage: LEFT EYE [SIC], SOLUTION FOR INJECTION, 40 MG/ML
     Route: 031
     Dates: start: 202303, end: 202303
  8. EYLEA [Suspect]
     Active Substance: AFLIBERCEPT
     Dosage: LEFT EYE [SIC], SOLUTION FOR INJECTION, 40 MG/ML
     Route: 031
     Dates: start: 202304

REACTIONS (1)
  - Scleral thinning [Unknown]

NARRATIVE: CASE EVENT DATE: 20230301
